FAERS Safety Report 21608234 (Version 1)
Quarter: 2022Q4

REPORT INFORMATION
  Report Type: Spontaneous
  Country: CA (occurrence: CA)
  Receive Date: 20221117
  Receipt Date: 20221117
  Transmission Date: 20230113
  Serious: Yes (Hospitalization)
  Sender: FDA-Public Use
  Company Number: None

PATIENT
  Age: 62 Year
  Sex: Female

DRUGS (11)
  1. CARBOPLATIN [Suspect]
     Active Substance: CARBOPLATIN
     Indication: Endometrial adenocarcinoma
     Dosage: 1 EVERY 21 DAYS
     Route: 042
  2. BISACODYL [Concomitant]
     Active Substance: BISACODYL
     Route: 065
  3. DEXAMETHASONE [Concomitant]
     Active Substance: DEXAMETHASONE
     Route: 065
  4. DIMENHYDRINATE [Concomitant]
     Active Substance: DIMENHYDRINATE
  5. FAMOTIDINE [Concomitant]
     Active Substance: FAMOTIDINE
  6. LACTULOSE [Concomitant]
     Active Substance: LACTULOSE
  7. MONTELUKAST [Concomitant]
     Active Substance: MONTELUKAST SODIUM
  8. ONDANSETRON [Concomitant]
     Active Substance: ONDANSETRON
  9. PACLITAXEL [Concomitant]
     Active Substance: PACLITAXEL
     Dosage: LIQUID INTRAVENOUS INJECTION
  10. PROCHLORPERAZINE [Concomitant]
     Active Substance: PROCHLORPERAZINE
  11. RIVAROXABAN [Concomitant]
     Active Substance: RIVAROXABAN
     Route: 065

REACTIONS (9)
  - Anisocoria [Recovered/Resolved]
  - Feeling hot [Recovered/Resolved]
  - Flushing [Recovered/Resolved]
  - Hypopnoea [Recovered/Resolved]
  - Muscle rigidity [Recovered/Resolved]
  - Nausea [Recovered/Resolved]
  - Oxygen therapy [Recovered/Resolved]
  - Troponin abnormal [Recovered/Resolved]
  - Unresponsive to stimuli [Recovered/Resolved]
